FAERS Safety Report 20873117 (Version 1)
Quarter: 2022Q2

REPORT INFORMATION
  Report Type: Spontaneous
  Country: ES (occurrence: ES)
  Receive Date: 20220525
  Receipt Date: 20220525
  Transmission Date: 20220720
  Serious: Yes (Death, Hospitalization)
  Sender: FDA-Public Use
  Company Number: ES-NOVARTISPH-NVSC2022ES120126

PATIENT
  Age: 58 Year
  Sex: Female

DRUGS (1)
  1. KISQALI [Suspect]
     Active Substance: RIBOCICLIB
     Indication: Breast cancer metastatic
     Dosage: 600 MG
     Route: 048
     Dates: start: 20200605, end: 20211018

REACTIONS (11)
  - Respiratory failure [Fatal]
  - Lymphopenia [Fatal]
  - Lung disorder [Fatal]
  - Interstitial lung disease [Fatal]
  - Oxygen saturation [Fatal]
  - Pneumonitis [Fatal]
  - Antinuclear antibody positive [Fatal]
  - Respiratory disorder [Fatal]
  - Dyspnoea [Fatal]
  - PO2 decreased [Fatal]
  - Respiratory acidosis [Fatal]

NARRATIVE: CASE EVENT DATE: 20211104
